FAERS Safety Report 7156337-9 (Version None)
Quarter: 2010Q4

REPORT INFORMATION
  Report Type: 
  Country: None (occurrence: None)
  Receive Date: 20101201
  Receipt Date: 20101118
  Transmission Date: 20110411
  Serious: Yes (Hospitalization)
  Sender: FDA-Public Use
  Company Number: 2010-4047

PATIENT
  Age: 49 Year
  Sex: Female
  Weight: 49 kg

DRUGS (4)
  1. DYSPORT [Suspect]
     Indication: OFF LABEL USE
     Dosage: SINGLE CYCLE
     Dates: start: 20101029, end: 20101029
  2. DYSPORT [Suspect]
     Indication: SKIN COSMETIC PROCEDURE
     Dosage: SINGLE CYCLE
     Dates: start: 20101029, end: 20101029
  3. DYSPORT [Suspect]
     Indication: SKIN WRINKLING
     Dosage: SINGLE CYCLE
     Dates: start: 20101029, end: 20101029
  4. MULTI-VITAMINS [Concomitant]

REACTIONS (9)
  - DIZZINESS [None]
  - DRUG ADMINISTERED AT INAPPROPRIATE SITE [None]
  - DYSPNOEA [None]
  - EYELID PTOSIS [None]
  - FACIAL PAIN [None]
  - FATIGUE [None]
  - LACRIMATION INCREASED [None]
  - OFF LABEL USE [None]
  - SWELLING FACE [None]
